FAERS Safety Report 4875642-X (Version None)
Quarter: 2006Q1

REPORT INFORMATION
  Report Type: 
  Country: None (occurrence: None)
  Receive Date: 20060105
  Receipt Date: 20051227
  Transmission Date: 20060701
  Serious: Yes (Hospitalization)
  Sender: FDA-Public Use
  Company Number: 2005168048

PATIENT
  Age: 74 Year
  Sex: Female

DRUGS (6)
  1. CABERGOLINE [Suspect]
     Indication: PARKINSON'S DISEASE
     Dosage: 0.5 MG (0.25 MG, BID), ORAL
     Route: 048
     Dates: start: 20050112, end: 20051215
  2. SELEGILINE HYDROCHLORIDE (SELEGILINE HYDROCHLORIDE) [Concomitant]
  3. PRAVASTATIN [Concomitant]
  4. ALENDRONATE SODIUM [Concomitant]
  5. EC DOPARL (BENSERAZIDE HYDROCHLORIDE, LEVODOPA) [Concomitant]
  6. SEROQUEL [Concomitant]

REACTIONS (2)
  - BLOOD PRESSURE INCREASED [None]
  - LOSS OF CONSCIOUSNESS [None]
